FAERS Safety Report 21090098 (Version 2)
Quarter: 2022Q3

REPORT INFORMATION
  Report Type: Report from Study
  Country: EG (occurrence: EG)
  Receive Date: 20220715
  Receipt Date: 20220801
  Transmission Date: 20221026
  Serious: Yes (Other)
  Sender: FDA-Public Use
  Company Number: EG-002147023-NVSC2022EG154103

PATIENT

DRUGS (5)
  1. RUXOLITINIB [Suspect]
     Active Substance: RUXOLITINIB
     Indication: Myelofibrosis
     Dosage: 2 DOSAGE FORM, QD
     Route: 065
  2. RUXOLITINIB [Suspect]
     Active Substance: RUXOLITINIB
     Dosage: 3 DOSAGE FORM, QD
     Route: 048
     Dates: start: 20220301
  3. GAPTIN [Concomitant]
     Indication: Medical diet
     Dosage: UNK UNK, QD (300)
     Route: 048
     Dates: start: 20211101
  4. FENOFIBRATE [Concomitant]
     Active Substance: FENOFIBRATE
     Indication: Prophylaxis
     Dosage: UNK UNK, QD (100)
     Route: 048
     Dates: start: 20211101
  5. GLUCOPHAGE [Concomitant]
     Active Substance: METFORMIN HYDROCHLORIDE
     Indication: Diabetes mellitus
     Dosage: UNK UNK, QD (1000)
     Route: 048
     Dates: start: 20211101, end: 20220627

REACTIONS (5)
  - Bone pain [Recovered/Resolved]
  - Pyrexia [Recovered/Resolved]
  - Platelet count abnormal [Not Recovered/Not Resolved]
  - Inappropriate schedule of product administration [Not Recovered/Not Resolved]
  - Drug ineffective [Not Recovered/Not Resolved]

NARRATIVE: CASE EVENT DATE: 20220315
